FAERS Safety Report 5842492-7 (Version None)
Quarter: 2008Q3

REPORT INFORMATION
  Report Type: 
  Country: None (occurrence: None)
  Receive Date: 20080808
  Receipt Date: 20080725
  Transmission Date: 20090109
  Serious: Yes (Hospitalization)
  Sender: FDA-Public Use
  Company Number: 2008BI017706

PATIENT
  Sex: Female

DRUGS (3)
  1. TYSABRI [Suspect]
     Indication: MULTIPLE SCLEROSIS
     Dosage: IV
     Route: 042
     Dates: start: 20070803, end: 20080124
  2. INSULIN [Concomitant]
  3. BLOOD THINNERS (NOS) [Concomitant]

REACTIONS (17)
  - ABDOMINAL DISTENSION [None]
  - BLOOD GLUCOSE FLUCTUATION [None]
  - CARDIAC DISORDER [None]
  - EATING DISORDER [None]
  - ECONOMIC PROBLEM [None]
  - EYELID OEDEMA [None]
  - HYPOTENSION [None]
  - INCISION SITE INFECTION [None]
  - MEMORY IMPAIRMENT [None]
  - MUSCULOSKELETAL DISORDER [None]
  - OEDEMA PERIPHERAL [None]
  - PAIN [None]
  - SUICIDAL IDEATION [None]
  - SWELLING [None]
  - SWELLING FACE [None]
  - SYNCOPE [None]
  - VENA CAVA THROMBOSIS [None]
